FAERS Safety Report 4338268-2 (Version None)
Quarter: 2004Q2

REPORT INFORMATION
  Report Type: 
  Country: None (occurrence: None)
  Receive Date: 20040409
  Receipt Date: 20040329
  Transmission Date: 20050107
  Serious: Yes (Hospitalization, Other)
  Sender: FDA-Public Use
  Company Number: HQWYE191029MAR04

PATIENT
  Age: 37 Year
  Sex: Female

DRUGS (2)
  1. SUPRAX [Suspect]
     Indication: INFLUENZA LIKE ILLNESS
     Dosage: 400 MG 1X PER 1 DAY; ORAL
     Route: 048
     Dates: start: 20031006, end: 20031010
  2. AVELOX [Suspect]
     Indication: INFLUENZA LIKE ILLNESS
     Dosage: 400 MG 1X PER 1 DAY; ORAL
     Route: 048
     Dates: start: 20030929, end: 20031003

REACTIONS (8)
  - ARTHRALGIA [None]
  - BLOOD CALCIUM DECREASED [None]
  - BLOOD POTASSIUM DECREASED [None]
  - DIARRHOEA [None]
  - HEADACHE [None]
  - INFECTION [None]
  - PYREXIA [None]
  - SCIATICA [None]
